FAERS Safety Report 8509496-7 (Version None)
Quarter: 2012Q3

REPORT INFORMATION
  Report Type: 
  Country: None (occurrence: None)
  Receive Date: 20120703
  Receipt Date: 20120618
  Transmission Date: 20120928
  Serious: Yes (Hospitalization)
  Sender: FDA-Public Use
  Company Number: 2012MA007564

PATIENT
  Age: 69 Year
  Sex: Female

DRUGS (2)
  1. CISPLATIN [Suspect]
     Indication: MALIGNANT URINARY TRACT NEOPLASM
  2. GEMCITABINE HYDROCHLORIDE [Suspect]
     Indication: MALIGNANT URINARY TRACT NEOPLASM

REACTIONS (5)
  - RENAL SALT-WASTING SYNDROME [None]
  - HYPONATRAEMIA [None]
  - ALTERED STATE OF CONSCIOUSNESS [None]
  - FATIGUE [None]
  - URINE OUTPUT INCREASED [None]
